FAERS Safety Report 20976815 (Version 2)
Quarter: 2022Q3

REPORT INFORMATION
  Report Type: Spontaneous
  Country: US (occurrence: None)
  Receive Date: 20220617
  Receipt Date: 20220713
  Transmission Date: 20221027
  Serious: No
  Sender: FDA-Public Use
  Company Number: 2022A191082

PATIENT
  Age: 804 Month
  Sex: Male
  Weight: 136.1 kg

DRUGS (1)
  1. BYDUREON BCISE [Suspect]
     Active Substance: EXENATIDE
     Indication: Diabetes mellitus
     Route: 058

REACTIONS (10)
  - Neuropathy peripheral [Not Recovered/Not Resolved]
  - Plantar fasciitis [Unknown]
  - Pain [Unknown]
  - Paraesthesia [Unknown]
  - Peripheral coldness [Unknown]
  - Sensory loss [Unknown]
  - Insomnia [Unknown]
  - Wrong technique in device usage process [Unknown]
  - Device leakage [Unknown]
  - Needle issue [Unknown]

NARRATIVE: CASE EVENT DATE: 20220101
